FAERS Safety Report 8106950-7 (Version None)
Quarter: 2012Q1

REPORT INFORMATION
  Report Type: 
  Country: None (occurrence: None)
  Receive Date: 20120202
  Receipt Date: 20120121
  Transmission Date: 20120608
  Serious: Yes (Death, Other)
  Sender: FDA-Public Use
  Company Number: MY-CELGENEUS-101-21880-11103495

PATIENT
  Sex: Male

DRUGS (6)
  1. REVLIMID [Suspect]
     Dosage: 10 MILLIGRAM
     Route: 048
     Dates: start: 20110413, end: 20110628
  2. MELPHALAN HYDROCHLORIDE [Concomitant]
     Dosage: 6 MILLIGRAM
     Route: 048
     Dates: start: 20111007, end: 20111011
  3. PIPERACILLIN AND TAZOBACTAM [Concomitant]
     Indication: SEPSIS
     Route: 048
     Dates: start: 20110901, end: 20110901
  4. DEXAMETHASONE [Concomitant]
     Dosage: 20 MILLIGRAM
     Route: 048
     Dates: start: 20111007, end: 20111011
  5. REVLIMID [Suspect]
     Dosage: 15 MILLIGRAM
     Route: 048
     Dates: start: 20110316
  6. VANCOMYCIN [Concomitant]
     Indication: SEPSIS
     Dosage: DOSE ADJUSTED
     Route: 065
     Dates: start: 20110901, end: 20110901

REACTIONS (2)
  - PANCYTOPENIA [None]
  - MULTIPLE MYELOMA [None]
